FAERS Safety Report 6927790-8 (Version None)
Quarter: 2010Q3

REPORT INFORMATION
  Report Type: 
  Country: None (occurrence: None)
  Receive Date: 20100816
  Receipt Date: 20100816
  Transmission Date: 20110219
  Serious: Yes (Death, Life-Threatening, Other)
  Sender: FDA-Public Use
  Company Number: None

PATIENT
  Age: 48 Year
  Sex: Female
  Weight: 90.4 kg

DRUGS (2)
  1. XIGRIS [Suspect]
     Indication: MULTI-ORGAN FAILURE
     Dosage: 1 DOSE
     Dates: start: 20100803, end: 20100803
  2. XIGRIS [Suspect]
     Indication: SEPSIS
     Dosage: 1 DOSE
     Dates: start: 20100803, end: 20100803

REACTIONS (1)
  - HAEMORRHAGE [None]
